FAERS Safety Report 7054977-9 (Version None)
Quarter: 2010Q4

REPORT INFORMATION
  Report Type: 
  Country: None (occurrence: None)
  Receive Date: 20101021
  Receipt Date: 20101014
  Transmission Date: 20110411
  Serious: Yes (Death)
  Sender: FDA-Public Use
  Company Number: JP-ELI_LILLY_AND_COMPANY-JP201009003087

PATIENT
  Sex: Male
  Weight: 50.9 kg

DRUGS (12)
  1. ALIMTA [Suspect]
     Indication: NON-SMALL CELL LUNG CANCER RECURRENT
     Dosage: 780.5 MG, OTHER
     Route: 042
     Dates: start: 20100830
  2. PLATOSIN [Concomitant]
     Indication: NON-SMALL CELL LUNG CANCER RECURRENT
     Dosage: 117.075 MG, OTHER
     Route: 042
     Dates: start: 20100830, end: 20100830
  3. PANVITAN [Concomitant]
     Indication: PROPHYLAXIS
     Dosage: 1 G, DAILY (1/D), 0.5 MG AS FOLIC ACID
     Route: 048
     Dates: start: 20100811
  4. DEXART [Concomitant]
     Indication: PROPHYLAXIS OF NAUSEA AND VOMITING
     Dosage: 6.6 MG, DAILY (1/D)
     Route: 042
     Dates: start: 20100830, end: 20100901
  5. DECADRON [Concomitant]
     Indication: PROPHYLAXIS
     Dosage: 8 MG, DAILY (1/D)
     Route: 048
     Dates: start: 20100831, end: 20100902
  6. STRONG NEO-MINOPHAGEN C [Concomitant]
     Indication: LIVER DISORDER
     Dosage: 40 MG, DAILY (1/D)
     Route: 042
     Dates: start: 20100826
  7. ALOXI [Concomitant]
     Indication: PROPHYLAXIS OF NAUSEA AND VOMITING
     Dosage: 0.75 MG, OTHER
     Route: 042
     Dates: start: 20100830, end: 20100830
  8. LASIX [Concomitant]
     Indication: PROPHYLAXIS
     Dosage: 20 MG, OTHER
     Route: 042
     Dates: start: 20100830, end: 20100830
  9. MANNIGEN [Concomitant]
     Indication: PROPHYLAXIS
     Dosage: 200 MG, DAILY (1/D)
     Route: 042
     Dates: start: 20100830, end: 20100901
  10. EMEND [Concomitant]
     Indication: PROPHYLAXIS OF NAUSEA AND VOMITING
     Dosage: 125 MG, OTHER
     Route: 048
     Dates: start: 20100830, end: 20100830
  11. EMEND [Concomitant]
     Dosage: 80 MG, DAILY (1/D)
     Route: 048
     Dates: start: 20100831
  12. KYTRIL [Concomitant]
     Indication: PROPHYLAXIS OF NAUSEA AND VOMITING
     Dosage: 3 MG, DAILY (1/D)
     Route: 042
     Dates: start: 20100831, end: 20100901

REACTIONS (7)
  - ACIDOSIS [None]
  - DECREASED APPETITE [None]
  - GASTROINTESTINAL NECROSIS [None]
  - INTESTINAL PERFORATION [None]
  - PERITONITIS [None]
  - PORTAL VENOUS GAS [None]
  - SEPTIC SHOCK [None]
